FAERS Safety Report 5173139-3 (Version None)
Quarter: 2006Q4

REPORT INFORMATION
  Report Type: 
  Country: None (occurrence: None)
  Receive Date: 20061207
  Receipt Date: 20061207
  Transmission Date: 20070319
  Serious: Yes (Disabling)
  Sender: FDA-Public Use
  Company Number: None

PATIENT
  Age: 67 Year
  Sex: Female
  Weight: 47.6277 kg

DRUGS (1)
  1. CLEOCIN PHOSPHATE IN DEXTROSE 5% [Suspect]
     Indication: BACTERIAL INFECTION
     Dosage: 900 MG   TID   IV DRIP
     Route: 041
     Dates: start: 20061203, end: 20061205

REACTIONS (1)
  - RASH [None]
